FAERS Safety Report 5727453-0 (Version None)
Quarter: 2008Q2

REPORT INFORMATION
  Report Type: 
  Country: None (occurrence: None)
  Receive Date: 20080501
  Receipt Date: 20070904
  Transmission Date: 20081010
  Serious: Yes (Other)
  Sender: FDA-Public Use
  Company Number: PHEH2007US05381

PATIENT
  Sex: Male

DRUGS (1)
  1. LOTREL [Suspect]
     Indication: HYPERTENSION
     Dosage: 10 MG AMLOD/20 MG BENAZ QD, ORAL
     Route: 048
     Dates: start: 20060404, end: 20070101

REACTIONS (2)
  - ANGIOEDEMA [None]
  - LIP SWELLING [None]
